FAERS Safety Report 13401840 (Version 1)
Quarter: 2017Q2

REPORT INFORMATION
  Report Type: Report from Study
  Country: US (occurrence: US)
  Receive Date: 20170404
  Receipt Date: 20170404
  Transmission Date: 20170830
  Serious: Yes (Disabling, Other)
  Sender: FDA-Public Use
  Company Number: US-GUERBET LLC-1064975

PATIENT
  Age: 48 Year
  Sex: Female

DRUGS (1)
  1. OPTIMARK [Suspect]
     Active Substance: GADOVERSETAMIDE
     Indication: ANGIOGRAM

REACTIONS (1)
  - Nephrogenic systemic fibrosis [Recovering/Resolving]
